FAERS Safety Report 15563691 (Version 1)
Quarter: 2018Q4

REPORT INFORMATION
  Report Type: Spontaneous
  Country: FR (occurrence: FR)
  Receive Date: 20181029
  Receipt Date: 20181029
  Transmission Date: 20190205
  Serious: Yes (Hospitalization)
  Sender: FDA-Public Use
  Company Number: PHHY2018FR136551

PATIENT
  Age: 86 Year
  Sex: Female
  Weight: 46 kg

DRUGS (3)
  1. VENOFER [Suspect]
     Active Substance: IRON SUCROSE
     Indication: ANAEMIA
     Dosage: (3 AMPOULES TOUS LES 2 JOURS)
     Route: 041
  2. PANTOPRAZOLE [Suspect]
     Active Substance: PANTOPRAZOLE
     Indication: ENTERITIS
     Dosage: 40 MG, QD
     Route: 048
     Dates: start: 20180902, end: 20180910
  3. ACIDE FOLIQUE [Suspect]
     Active Substance: FOLIC ACID
     Indication: STARVATION
     Dosage: 10 MG, QD
     Route: 048
     Dates: start: 20180902, end: 20180908

REACTIONS (2)
  - Toxic skin eruption [Recovering/Resolving]
  - Eosinophilia [Recovering/Resolving]

NARRATIVE: CASE EVENT DATE: 20180906
